FAERS Safety Report 20110823 (Version 1)
Quarter: 2021Q4

REPORT INFORMATION
  Report Type: Spontaneous
  Country: US (occurrence: US)
  Receive Date: 20211124
  Receipt Date: 20211124
  Transmission Date: 20220303
  Serious: No
  Sender: FDA-Public Use
  Company Number: US-ROCHE-2775012

PATIENT
  Age: 64 Year
  Sex: Male

DRUGS (2)
  1. TARCEVA [Suspect]
     Active Substance: ERLOTINIB HYDROCHLORIDE
     Indication: Lung adenocarcinoma
     Dosage: UNK UNK, UNKNOWN FREQ.
     Route: 048
     Dates: start: 202008
  2. TARCEVA [Suspect]
     Active Substance: ERLOTINIB HYDROCHLORIDE
     Indication: EGFR gene mutation

REACTIONS (4)
  - Productive cough [Unknown]
  - Pain in extremity [Unknown]
  - Eye irritation [Unknown]
  - Rash [Unknown]
